FAERS Safety Report 17310477 (Version 1)
Quarter: 2020Q1

REPORT INFORMATION
  Report Type: Spontaneous
  Country: US (occurrence: US)
  Receive Date: 20200123
  Receipt Date: 20200123
  Transmission Date: 20200409
  Serious: No
  Sender: FDA-Public Use
  Company Number: US-GE HEALTHCARE LIFE SCIENCES-2019CSU002996

PATIENT
  Age: 57 Year
  Sex: Female

DRUGS (3)
  1. OMNIPAQUE [Suspect]
     Active Substance: IOHEXOL
     Indication: ANGIOGRAM
     Dosage: 80 ML, SINGLE (AT A RATE OF 3.5)
     Route: 042
     Dates: start: 20190521, end: 20190521
  2. OMNIPAQUE [Suspect]
     Active Substance: IOHEXOL
     Indication: DYSPNOEA
  3. SALINE [Concomitant]
     Active Substance: SODIUM CHLORIDE
     Dosage: 20 ML, SINGLE
     Route: 042
     Dates: start: 20190521, end: 20190521

REACTIONS (1)
  - Injection site extravasation [Unknown]

NARRATIVE: CASE EVENT DATE: 20190521
